FAERS Safety Report 7400068-4 (Version None)
Quarter: 2011Q2

REPORT INFORMATION
  Report Type: 
  Country: None (occurrence: None)
  Receive Date: 20110407
  Receipt Date: 20110322
  Transmission Date: 20111010
  Serious: Yes (Other)
  Sender: FDA-Public Use
  Company Number: JP-ASTRAZENECA-2011SE11843

PATIENT
  Age: 25778 Day
  Sex: Female
  Weight: 73 kg

DRUGS (5)
  1. AMLODIPINE [Suspect]
     Indication: HYPERTENSION
     Route: 048
     Dates: start: 20101101
  2. BLOPRESS [Suspect]
     Indication: HYPERTENSION
     Route: 048
  3. PANTOPRAZOLE SODIUM [Concomitant]
     Route: 048
  4. HERBAL PREPARATION [Concomitant]
     Dosage: INDIVIDUAL PREPARATION FROM YAM ROOT
     Route: 065
  5. LEVOTHYROXINE SODIUM [Concomitant]
     Route: 048

REACTIONS (5)
  - RASH GENERALISED [None]
  - LIMB DISCOMFORT [None]
  - CONJUNCTIVITIS [None]
  - CONSTIPATION [None]
  - FLUID RETENTION [None]
